FAERS Safety Report 9799110 (Version 2)
Quarter: 2014Q1

REPORT INFORMATION
  Report Type: Spontaneous
  Country: US (occurrence: US)
  Receive Date: 20140106
  Receipt Date: 20140106
  Transmission Date: 20141002
  Serious: No
  Sender: FDA-Public Use
  Company Number: US-GILEAD-2010-0033635

PATIENT
  Age: 71 Year
  Sex: Male

DRUGS (12)
  1. LETAIRIS [Suspect]
     Indication: PULMONARY ARTERIAL HYPERTENSION
     Route: 048
     Dates: start: 20100517
  2. REVATIO [Concomitant]
  3. SPIRIVA [Concomitant]
  4. LIPITOR [Concomitant]
  5. ASPIRIN [Concomitant]
  6. FUROSEMIDE [Concomitant]
  7. N-ACETYL-L-CYSTEINE [Concomitant]
  8. PREDNISONE [Concomitant]
  9. LANSOPRAZOLE [Concomitant]
  10. AZATHIOPRINE [Concomitant]
  11. MVI [Concomitant]
  12. POTASSIUM [Concomitant]

REACTIONS (1)
  - Eye haemorrhage [Not Recovered/Not Resolved]
